FAERS Safety Report 10019886 (Version 2)
Quarter: 2014Q1

REPORT INFORMATION
  Report Type: Spontaneous
  Country: US (occurrence: US)
  Receive Date: 20140318
  Receipt Date: 20140318
  Transmission Date: 20141002
  Serious: No
  Sender: FDA-Public Use
  Company Number: US-GALDERMA-US14000214

PATIENT
  Age: 62 Year
  Sex: Female

DRUGS (4)
  1. MIRVASO (BRIMONIDINE) TOPICAL GEL, 0.33% [Suspect]
     Indication: ROSACEA
     Dosage: 0.33%
     Route: 061
     Dates: start: 20131230, end: 20140111
  2. CETAPHIL MOISTURIZING CREAM [Concomitant]
     Route: 061
  3. CETAPHIL DAILY FACIAL MOISTURIZER SPF15 [Concomitant]
     Route: 061
  4. CETAPHIL CLEANSER [Concomitant]
     Route: 061

REACTIONS (20)
  - Rebound effect [Not Recovered/Not Resolved]
  - Condition aggravated [Not Recovered/Not Resolved]
  - Rash macular [Not Recovered/Not Resolved]
  - Skin swelling [Recovered/Resolved]
  - Epistaxis [Recovered/Resolved]
  - Lip dry [Recovered/Resolved]
  - Cheilitis [Recovered/Resolved]
  - Ocular hyperaemia [Recovered/Resolved]
  - Dark circles under eyes [Recovered/Resolved]
  - Abnormal sensation in eye [Recovered/Resolved]
  - Capillary fragility [Not Recovered/Not Resolved]
  - Skin irritation [Recovered/Resolved]
  - Emotional distress [Not Recovered/Not Resolved]
  - Hypotension [Unknown]
  - Vision blurred [Not Recovered/Not Resolved]
  - Activities of daily living impaired [Unknown]
  - Erythema [Not Recovered/Not Resolved]
  - Flushing [Not Recovered/Not Resolved]
  - Skin burning sensation [Not Recovered/Not Resolved]
  - Off label use [Recovered/Resolved]
